FAERS Safety Report 4760361-0 (Version None)
Quarter: 2005Q3

REPORT INFORMATION
  Report Type: 
  Country: None (occurrence: None)
  Receive Date: 20050902
  Receipt Date: 20050829
  Transmission Date: 20060218
  Serious: Yes (Death, Hospitalization)
  Sender: FDA-Public Use
  Company Number: 2005SE04916

PATIENT
  Age: 855 Month
  Sex: Male

DRUGS (7)
  1. SELO-ZOK [Suspect]
     Indication: TACHYCARDIA
     Route: 048
     Dates: start: 20050412, end: 20050513
  2. PROSCAR [Interacting]
     Dates: start: 19960101
  3. ISOPTIN [Interacting]
     Indication: TACHYCARDIA
     Dates: start: 20050131, end: 20050406
  4. LIPITOR [Interacting]
     Indication: HYPERCHOLESTEROLAEMIA
     Dates: start: 20040225, end: 20050412
  5. GLUCOPHAGE [Interacting]
     Indication: DIABETES MELLITUS
     Dates: start: 20030310
  6. VIVAL [Concomitant]
     Dates: start: 19930809
  7. ALBYL-E [Concomitant]
     Indication: PROPHYLAXIS
     Dates: start: 20030310, end: 20050412

REACTIONS (4)
  - DRUG INTERACTION [None]
  - DRUG TOXICITY [None]
  - HEPATIC FAILURE [None]
  - HEPATITIS [None]
